FAERS Safety Report 23623365 (Version 3)
Quarter: 2024Q2

REPORT INFORMATION
  Report Type: Spontaneous
  Country: US (occurrence: US)
  Receive Date: 20240312
  Receipt Date: 20240507
  Transmission Date: 20240716
  Serious: Yes (Hospitalization, Other)
  Sender: FDA-Public Use
  Company Number: US-BRISTOL-MYERS SQUIBB COMPANY-2024-034978

PATIENT
  Age: 80 Year
  Sex: Male
  Weight: 83.6 kg

DRUGS (2)
  1. IDHIFA [Suspect]
     Active Substance: ENASIDENIB MESYLATE
     Indication: Acute myeloid leukaemia
     Route: 048
     Dates: start: 20240206
  2. IDHIFA [Suspect]
     Active Substance: ENASIDENIB MESYLATE
     Indication: Myelodysplastic syndrome
     Route: 048
     Dates: start: 20240206

REACTIONS (8)
  - Rash papular [Unknown]
  - Dyspnoea [Unknown]
  - Discomfort [Unknown]
  - Diabetes mellitus [Unknown]
  - Back disorder [Unknown]
  - Nausea [Unknown]
  - Hypertension [Unknown]
  - Diarrhoea [Unknown]

NARRATIVE: CASE EVENT DATE: 20240329
